FAERS Safety Report 23398991 (Version 2)
Quarter: 2024Q1

REPORT INFORMATION
  Report Type: Spontaneous
  Country: FR (occurrence: FR)
  Receive Date: 20240112
  Receipt Date: 20240130
  Transmission Date: 20240410
  Serious: Yes (Other)
  Sender: FDA-Public Use
  Company Number: FR-JAZZ PHARMACEUTICALS-2024-FR-000647

PATIENT

DRUGS (6)
  1. CANNABIDIOL [Suspect]
     Active Substance: CANNABIDIOL
     Indication: Severe myoclonic epilepsy of infancy
     Dosage: 10 MG/KG/DAY
     Dates: start: 202303, end: 2023
  2. CANNABIDIOL [Suspect]
     Active Substance: CANNABIDIOL
     Dosage: 14MG/KG/DAY
     Dates: start: 2023, end: 2023
  3. CANNABIDIOL [Suspect]
     Active Substance: CANNABIDIOL
     Dosage: 10MG/KG/DAY
     Dates: start: 2023, end: 202308
  4. CANNABIDIOL [Suspect]
     Active Substance: CANNABIDIOL
     Dosage: UNK
     Route: 048
     Dates: start: 20221201, end: 20230426
  5. VALPROATE SODIUM [Concomitant]
     Active Substance: VALPROATE SODIUM
     Indication: Product used for unknown indication
  6. CLOBAZAM [Concomitant]
     Active Substance: CLOBAZAM
     Indication: Product used for unknown indication

REACTIONS (4)
  - Epilepsy [Recovered/Resolved]
  - Transaminases increased [Unknown]
  - Somnolence [Unknown]
  - Drug ineffective [Unknown]
